FAERS Safety Report 9514842 (Version 1)
Quarter: 2013Q1

REPORT INFORMATION
  Report Type: Spontaneous
  Country: US (occurrence: None)
  Receive Date: 20130305
  Receipt Date: 20130305
  Transmission Date: 20140127
  Serious: Yes (Other)
  Sender: FDA-Public Use
  Company Number: 163-21880-12121784

PATIENT
  Age: 69 Year
  Sex: Female

DRUGS (3)
  1. REVLIMID [Suspect]
     Indication: PLASMA CELL MYELOMA
     Dosage: 10 MG, 21 IN 28 D, PO
     Route: 048
     Dates: start: 20121108, end: 20121213
  2. ACYCLOVIR (ACICLOVIR) (UNKNOWN) [Concomitant]
  3. FEXOFENADINE (FEXOFENADINE) (UNKNOWN) [Concomitant]

REACTIONS (1)
  - Full blood count decreased [None]
